FAERS Safety Report 17973617 (Version 4)
Quarter: 2021Q2

REPORT INFORMATION
  Report Type: Report from Study
  Country: GB (occurrence: GB)
  Receive Date: 20200702
  Receipt Date: 20210527
  Transmission Date: 20210717
  Serious: Yes (Hospitalization)
  Sender: FDA-Public Use
  Company Number: PHHY2019GB103345

PATIENT
  Age: 81 Year
  Sex: Female

DRUGS (6)
  1. SANDOSTATIN LAR DEPOT [Suspect]
     Active Substance: OCTREOTIDE ACETATE
     Dosage: 30 MG, QMO (EVERY 4 WEEKS)
     Route: 030
  2. BENDROFLUMETHIAZIDE [Concomitant]
     Active Substance: BENDROFLUMETHIAZIDE
     Indication: PRODUCT USED FOR UNKNOWN INDICATION
     Dosage: UNK
     Route: 065
  3. BISOPROLOL [Concomitant]
     Active Substance: BISOPROLOL
     Indication: PRODUCT USED FOR UNKNOWN INDICATION
     Dosage: UNK (AT NIGHT)
     Route: 065
  4. SANDOSTATIN LAR DEPOT [Suspect]
     Active Substance: OCTREOTIDE ACETATE
     Indication: ACROMEGALY
     Dosage: 20 MG, QMO
     Route: 030
  5. SANDOSTATIN LAR DEPOT [Suspect]
     Active Substance: OCTREOTIDE ACETATE
     Dosage: 30 MG, QMO
     Route: 030
  6. SANDOSTATIN LAR DEPOT [Suspect]
     Active Substance: OCTREOTIDE ACETATE
     Dosage: 30 MG, Q3W (EVERY 3 WEEKS)
     Route: 030

REACTIONS (20)
  - Paraesthesia [Not Recovered/Not Resolved]
  - Contusion [Unknown]
  - Heart rate decreased [Unknown]
  - Peripheral nerve lesion [Unknown]
  - Dizziness [Unknown]
  - Vitamin B12 deficiency [Unknown]
  - Cough [Unknown]
  - Abdominal discomfort [Unknown]
  - Abdominal pain [Unknown]
  - Dyspnoea [Unknown]
  - Inappropriate schedule of product administration [Unknown]
  - Constipation [Unknown]
  - Fatigue [Unknown]
  - Hypotension [Unknown]
  - Fall [Unknown]
  - Arthralgia [Unknown]
  - Atrioventricular block [Unknown]
  - Pain [Unknown]
  - Needle issue [Unknown]
  - Pharyngitis [Unknown]

NARRATIVE: CASE EVENT DATE: 20200530
